FAERS Safety Report 5324084-1 (Version None)
Quarter: 2007Q2

REPORT INFORMATION
  Report Type: 
  Country: None (occurrence: None)
  Receive Date: 20070507
  Receipt Date: 20070426
  Transmission Date: 20071010
  Serious: Yes (Death, Hospitalization)
  Sender: FDA-Public Use
  Company Number: 028-C5013-07040883

PATIENT
  Age: 47 Year
  Sex: Male
  Weight: 58.3 kg

DRUGS (16)
  1. CC-5013 (LENALIDOMIDE) (CAPSULES) [Suspect]
     Indication: MULTIPLE MYELOMA
     Dosage: 25 MG, 1 IN 1D, ORAL
     Route: 048
     Dates: start: 20070118, end: 20070417
  2. DEXTROSE [Concomitant]
  3. SODIUM CLODRONATE (CLODRONATE DISODIUM) [Concomitant]
  4. ACYCLOVIR [Concomitant]
  5. MORPHINE [Concomitant]
  6. MAGNESIUM SULFATE [Concomitant]
  7. FUROSEMIDE [Concomitant]
  8. FENTANYL CITRATE [Concomitant]
  9. CALCIUM GLUCONATE [Concomitant]
  10. SODIUM BICARBONATE IN PLASTIC CONTAINER [Concomitant]
  11. RISPERIDONE [Concomitant]
  12. DIMENHYDRINATE (DIMENHYDRAINATE) [Concomitant]
  13. METOCLOPRAMIDE [Concomitant]
  14. PREDNIONE (PREDNISONE) [Concomitant]
  15. DEXTROMETHORPHAN HYDROBROMIDE [Concomitant]
  16. ACETAMINOPHEN [Concomitant]

REACTIONS (12)
  - ABDOMINAL DISCOMFORT [None]
  - ATELECTASIS [None]
  - ATRIAL FLUTTER [None]
  - CONDUCTION DISORDER [None]
  - DERMATITIS BULLOUS [None]
  - DISEASE PROGRESSION [None]
  - LUNG CONSOLIDATION [None]
  - MALAISE [None]
  - MULTIPLE MYELOMA [None]
  - RASH GENERALISED [None]
  - SEPSIS [None]
  - THROMBOCYTOPENIA [None]
